FAERS Safety Report 18763274 (Version 1)
Quarter: 2021Q1

REPORT INFORMATION
  Report Type: Spontaneous
  Country: CA (occurrence: CA)
  Receive Date: 20210120
  Receipt Date: 20210120
  Transmission Date: 20210419
  Serious: Yes (Life-Threatening, Hospitalization)
  Sender: FDA-Public Use
  Company Number: CA-ACCORD-214349

PATIENT
  Age: 65 Year
  Sex: Female
  Weight: 68 kg

DRUGS (14)
  1. ETOPOSIDE. [Suspect]
     Active Substance: ETOPOSIDE
     Indication: ADULT T-CELL LYMPHOMA/LEUKAEMIA
     Route: 042
  2. MESNA. [Suspect]
     Active Substance: MESNA
     Indication: ADULT T-CELL LYMPHOMA/LEUKAEMIA
     Route: 042
  3. COLECALCIFEROL [Concomitant]
     Active Substance: CHOLECALCIFEROL
  4. OMEPRAZOLE. [Concomitant]
     Active Substance: OMEPRAZOLE
  5. METOPROLOL. [Concomitant]
     Active Substance: METOPROLOL
     Route: 065
  6. ZOPICLONE [Concomitant]
     Active Substance: ZOPICLONE
  7. GABAPENTIN. [Concomitant]
     Active Substance: GABAPENTIN
  8. IFOSFAMIDE. [Suspect]
     Active Substance: IFOSFAMIDE
     Indication: ADULT T-CELL LYMPHOMA/LEUKAEMIA
     Dosage: POWDER FOR SOLUTION INTRAVENOUS INJECTION, USP 1 EVERY 1 DAYS
     Route: 042
  9. MAGNESIUM OXIDE. [Concomitant]
     Active Substance: MAGNESIUM OXIDE
  10. ELMIRON [Concomitant]
     Active Substance: PENTOSAN POLYSULFATE SODIUM
  11. RITUXIMAB. [Suspect]
     Active Substance: RITUXIMAB
     Indication: ADULT T-CELL LYMPHOMA/LEUKAEMIA
     Dosage: ONCE
     Route: 042
  12. SERTRALINE [Concomitant]
     Active Substance: SERTRALINE HYDROCHLORIDE
  13. LORAZEPAM. [Concomitant]
     Active Substance: LORAZEPAM
  14. CARBOPLATIN. [Suspect]
     Active Substance: CARBOPLATIN
     Indication: ADULT T-CELL LYMPHOMA/LEUKAEMIA
     Dosage: SOLUTION INTRAVENOUS
     Route: 042

REACTIONS (6)
  - Platelet count decreased [Recovered/Resolved]
  - Haemoglobin decreased [Recovered/Resolved]
  - Off label use [Unknown]
  - Febrile neutropenia [Recovered/Resolved]
  - Klebsiella sepsis [Recovered/Resolved]
  - Oesophageal candidiasis [Recovered/Resolved]
